FAERS Safety Report 4423579-2 (Version None)
Quarter: 2004Q3

REPORT INFORMATION
  Report Type: 
  Country: None (occurrence: None)
  Receive Date: 20040714
  Receipt Date: 20040309
  Transmission Date: 20050211
  Serious: Yes (Death)
  Sender: FDA-Public Use
  Company Number: 200320546US

PATIENT
  Age: 77 Year
  Sex: Female
  Weight: 96.8 kg

DRUGS (2)
  1. TAXOTERE [Suspect]
     Indication: ENDOMETRIAL CANCER
     Dosage: 70 MG QW IV
     Route: 042
     Dates: start: 20030910, end: 20031015
  2. RADIATIONS THERAPY NOS [Concomitant]

REACTIONS (1)
  - ENDOMETRIAL CANCER [None]
